FAERS Safety Report 25012878 (Version 1)
Quarter: 2025Q1

REPORT INFORMATION
  Report Type: Spontaneous
  Country: US (occurrence: None)
  Receive Date: 20250226
  Receipt Date: 20250226
  Transmission Date: 20250409
  Serious: Yes (Hospitalization)
  Sender: FDA-CTU
  Company Number: None

PATIENT
  Age: 40 Year
  Sex: Female
  Weight: 84.3 kg

DRUGS (3)
  1. PEMBROLIZUMAB [Suspect]
     Active Substance: PEMBROLIZUMAB
     Dates: end: 20250127
  2. SULFAMETHOXAZOLE\TRIMETHOPRIM [Suspect]
     Active Substance: SULFAMETHOXAZOLE\TRIMETHOPRIM
  3. VANCOMYCIN [Suspect]
     Active Substance: VANCOMYCIN

REACTIONS (6)
  - Implantation complication [None]
  - Mastitis [None]
  - Rash pruritic [None]
  - Staphylococcus test positive [None]
  - Candida test positive [None]
  - Atypical mycobacterium test positive [None]

NARRATIVE: CASE EVENT DATE: 20250212
